FAERS Safety Report 23922953 (Version 2)
Quarter: 2024Q2

REPORT INFORMATION
  Report Type: Spontaneous
  Country: PL (occurrence: PL)
  Receive Date: 20240531
  Receipt Date: 20240614
  Transmission Date: 20240716
  Serious: Yes (Hospitalization)
  Sender: FDA-Public Use
  Company Number: PL-ROCHE-3563553

PATIENT
  Age: 54 Year
  Sex: Female
  Weight: 63.7 kg

DRUGS (14)
  1. CARBOPLATIN [Suspect]
     Active Substance: CARBOPLATIN
     Indication: Non-small cell lung cancer metastatic
     Dosage: 658 MILLIGRAM, 3 WEEKS
     Route: 042
     Dates: start: 20230830
  2. PEMETREXED [Suspect]
     Active Substance: PEMETREXED
     Indication: Non-small cell lung cancer metastatic
     Dosage: 865 MILLIGRAM, 3 WEEKS (ON 18/APR/2024, SHE RECEIVED THE MOST RECENT DOSE PRIOR TO SAE (840 MG))
     Route: 042
     Dates: start: 20230830
  3. ATEZOLIZUMAB [Concomitant]
     Active Substance: ATEZOLIZUMAB
     Indication: Non-small cell lung cancer metastatic
     Dosage: 3 WEEKS, ON 18/APR/2024, SHE RECEIVED THE MOST RECENT DOSE PRIOR TO SAE
     Route: 065
     Dates: start: 20230830
  4. FLUDROCORTISONE [Concomitant]
     Active Substance: FLUDROCORTISONE
     Indication: Addison^s disease
     Dosage: 0.1 MILLIGRAM, ONCE A DAY
     Route: 065
     Dates: start: 20240512
  5. DEXAMETHASONE [Concomitant]
     Active Substance: DEXAMETHASONE
     Indication: Product used for unknown indication
     Dosage: 4 MILLIGRAM, TWO TIMES A DAY
     Route: 065
     Dates: start: 20240417
  6. FOLIC ACID [Concomitant]
     Active Substance: FOLIC ACID
     Indication: Product used for unknown indication
     Dosage: 400 MILLIGRAM, ONCE A DAY
     Route: 065
     Dates: start: 20230825
  7. HYDROCORTISONE [Concomitant]
     Active Substance: HYDROCORTISONE\HYDROCORTISONE ACETATE
     Indication: Addison^s disease
     Dosage: 50 MILLIGRAM,0.33 DAY
     Route: 065
     Dates: start: 20240311, end: 20240311
  8. HYDROCORTISONE [Concomitant]
     Active Substance: HYDROCORTISONE\HYDROCORTISONE ACETATE
     Dosage: 100 MILLIGRAM, ONCE A DAY
     Route: 065
     Dates: start: 20240510, end: 20240510
  9. HYDROCORTISONE [Concomitant]
     Active Substance: HYDROCORTISONE\HYDROCORTISONE ACETATE
     Dosage: 30 MILLIGRAM, ONCE A DAY
     Route: 065
     Dates: start: 20240512, end: 20240513
  10. HYDROCORTISONE [Concomitant]
     Active Substance: HYDROCORTISONE\HYDROCORTISONE ACETATE
     Dosage: 20 MILLIGRAM, ONCE A DAY
     Route: 065
     Dates: start: 20240514
  11. SODIUM CHLORIDE [Concomitant]
     Active Substance: SODIUM CHLORIDE
     Indication: Hypercalcaemia
     Dosage: 500 MILLILITER, ONCE A DAY
     Route: 065
     Dates: start: 20240510, end: 20240514
  12. ONDANSETRON [Concomitant]
     Active Substance: ONDANSETRON
     Indication: Product used for unknown indication
     Dosage: 8 MILLIGRAM
     Route: 065
     Dates: start: 20240418
  13. PEMBROLIZUMAB [Concomitant]
     Active Substance: PEMBROLIZUMAB
     Indication: Non-small cell lung cancer metastatic
     Dosage: 3 WEEKS, ON 18/APR/2024, SHE RECEIVED THE MOST RECENT DOSE PRIOR TO SAE
     Route: 065
     Dates: start: 20230830
  14. TIRAGOLUMAB [Concomitant]
     Active Substance: TIRAGOLUMAB
     Indication: Non-small cell lung cancer metastatic
     Dosage: 3 WEEKS, ON 18/APR/2024, SHE RECEIVED THE MOST RECENT DOSE PRIOR TO SAE
     Route: 065
     Dates: start: 20230830

REACTIONS (2)
  - Asthenia [Recovered/Resolved]
  - Electrolyte imbalance [Recovering/Resolving]

NARRATIVE: CASE EVENT DATE: 20240510
